FAERS Safety Report 18971295 (Version 1)
Quarter: 2021Q1

REPORT INFORMATION
  Report Type: Report from Study
  Country: None (occurrence: DE)
  Receive Date: 20210305
  Receipt Date: 20210305
  Transmission Date: 20210420
  Serious: Yes (Hospitalization)
  Sender: FDA-Public Use
  Company Number: DE-COEPTIS PHARMACEUTICALS, INC.-COE-2021-000026

PATIENT
  Age: 65 Year
  Sex: Male

DRUGS (1)
  1. AMLODIPINE [Suspect]
     Active Substance: AMLODIPINE BESYLATE
     Indication: HYPERTENSION

REACTIONS (7)
  - Shock [Unknown]
  - Toxicity to various agents [Unknown]
  - Transient global amnesia [Unknown]
  - Atrial fibrillation [Unknown]
  - Aortic thrombosis [Unknown]
  - Hypotension [Unknown]
  - Embolic stroke [Unknown]
